FAERS Safety Report 9454120 (Version 1)
Quarter: 2013Q3

REPORT INFORMATION
  Report Type: Spontaneous
  Country: DE (occurrence: DE)
  Receive Date: 20130812
  Receipt Date: 20130812
  Transmission Date: 20140515
  Serious: Yes (Congenital Anomaly, Other)
  Sender: FDA-Public Use
  Company Number: DE-PFIZER INC-2013229781

PATIENT
  Age: 1 Day
  Sex: Male

DRUGS (5)
  1. ZOLOFT [Suspect]
     Indication: DEPRESSION
     Dosage: 100 MG, DAILY
     Route: 064
  2. ZOLOFT [Suspect]
     Dosage: 75 MG, DAILY
     Route: 064
  3. AMINEURIN [Suspect]
     Dosage: 25 MG, 3X/DAY TAKEN IRREGULARLY
     Route: 064
  4. BROMAZEPAM [Suspect]
     Indication: SLEEP DISORDER
     Dosage: UNK, WHEN NEEDED
     Route: 064
  5. THYROXIN [Concomitant]
     Indication: HYPOTHYROIDISM
     Dosage: 100 UG, 1X/DAY
     Route: 064

REACTIONS (4)
  - Maternal exposure during pregnancy [Recovered/Resolved]
  - Neonatal respiratory distress syndrome [Recovered/Resolved]
  - Large for dates baby [Recovered/Resolved]
  - Hydrocele [Recovered/Resolved]
